FAERS Safety Report 21930238 (Version 3)
Quarter: 2023Q1

REPORT INFORMATION
  Report Type: Report from Study
  Country: US (occurrence: US)
  Receive Date: 20230131
  Receipt Date: 20230203
  Transmission Date: 20230418
  Serious: No
  Sender: FDA-Public Use
  Company Number: US-002147023-NVSC2023US019589

PATIENT
  Sex: Female

DRUGS (5)
  1. CLOBETASOL [Suspect]
     Active Substance: CLOBETASOL
     Indication: Psoriasis
     Dosage: UNK
     Route: 065
  2. CARVEDILOL [Suspect]
     Active Substance: CARVEDILOL
     Indication: Psoriasis
     Dosage: UNK
     Route: 065
  3. LETROZOLE [Suspect]
     Active Substance: LETROZOLE
     Indication: Psoriasis
     Dosage: UNK
     Route: 065
  4. LOTREL [Suspect]
     Active Substance: AMLODIPINE BESYLATE\BENAZEPRIL HYDROCHLORIDE
     Indication: Psoriasis
     Dosage: UNK
     Route: 065
  5. BIOTIN [Suspect]
     Active Substance: BIOTIN
     Indication: Psoriasis
     Dosage: UNK
     Route: 065

REACTIONS (3)
  - Arthropathy [Unknown]
  - Drug ineffective [Unknown]
  - Product use in unapproved indication [Unknown]
